FAERS Safety Report 19077247 (Version 1)
Quarter: 2021Q1

REPORT INFORMATION
  Report Type: Report from Study
  Country: IN (occurrence: IN)
  Receive Date: 20210331
  Receipt Date: 20210331
  Transmission Date: 20210420
  Serious: Yes (Hospitalization, Other)
  Sender: FDA-Public Use
  Company Number: IN-SUN PHARMACEUTICAL INDUSTRIES LTD-2021R1-288509

PATIENT
  Age: 26 Year
  Sex: Female

DRUGS (4)
  1. BISOPROLOL [Suspect]
     Active Substance: BISOPROLOL
     Indication: PERIPARTUM CARDIOMYOPATHY
     Dosage: UNK
     Route: 065
  2. ISOSORBIDE. [Suspect]
     Active Substance: ISOSORBIDE
     Indication: PERIPARTUM CARDIOMYOPATHY
     Dosage: UNK
     Route: 065
  3. DIGOXIN. [Suspect]
     Active Substance: DIGOXIN
     Indication: PERIPARTUM CARDIOMYOPATHY
     Dosage: UNK
     Route: 065
  4. FUROSEMIDE. [Suspect]
     Active Substance: FUROSEMIDE
     Indication: PERIPARTUM CARDIOMYOPATHY
     Dosage: UNK
     Route: 065

REACTIONS (5)
  - COVID-19 [Unknown]
  - Exposure during pregnancy [Unknown]
  - Live birth [Unknown]
  - Premature labour [Unknown]
  - Premature rupture of membranes [Unknown]
